FAERS Safety Report 23873121 (Version 1)
Quarter: 2024Q2

REPORT INFORMATION
  Report Type: Spontaneous
  Country: GB (occurrence: GB)
  Receive Date: 20240520
  Receipt Date: 20240520
  Transmission Date: 20240716
  Serious: Yes (Other)
  Sender: FDA-Public Use
  Company Number: None

PATIENT
  Age: 57 Year
  Sex: Male
  Weight: 100 kg

DRUGS (15)
  1. EPLERENONE [Suspect]
     Active Substance: EPLERENONE
     Indication: Product used for unknown indication
     Dosage: TAKE HALF A TABLET ONCE A DAY
     Dates: start: 20240318
  2. AMLODIPINE [Concomitant]
     Active Substance: AMLODIPINE BESYLATE
     Dates: start: 20230110, end: 20240318
  3. ASPIRIN [Concomitant]
     Active Substance: ASPIRIN
     Dosage: WITH FOOD TO HELP PR...
     Dates: start: 20240318
  4. ATORVASTATIN [Concomitant]
     Active Substance: ATORVASTATIN
     Indication: Hypercholesterolaemia
     Dates: start: 20230925
  5. BISOPROLOL [Concomitant]
     Active Substance: BISOPROLOL\BISOPROLOL FUMARATE
     Dates: start: 20240318
  6. CLOPIDOGREL [Concomitant]
     Active Substance: CLOPIDOGREL BISULFATE
     Dosage: TO HELP PREVENT HEART ...
     Dates: start: 20240318, end: 20240318
  7. DAPAGLIFLOZIN [Concomitant]
     Active Substance: DAPAGLIFLOZIN
     Dates: start: 20240318
  8. NITROGLYCERIN [Concomitant]
     Active Substance: NITROGLYCERIN
     Dosage: SPRAY ONE TO TWO DOSES UNDER THE TONGUE (THEN C...
     Dates: start: 20240318
  9. HYDROCORTISONE [Concomitant]
     Active Substance: HYDROCORTISONE
     Dosage: APPLY THINLY TO THE AFFECTED AREA(S) ONCE OR TW...
     Dates: start: 20240321, end: 20240418
  10. LANSOPRAZOLE [Concomitant]
     Active Substance: LANSOPRAZOLE
     Dosage: TO HELP PREVENT IND...
     Dates: start: 20240318
  11. NYSTATIN [Concomitant]
     Active Substance: NYSTATIN
     Indication: Fungal infection
     Dosage: IN MOUTH
     Dates: start: 20240313, end: 20240320
  12. OTOMIZE [Concomitant]
     Dosage: ONE SPRAY INTO THE AFFECTED EAR(S) THREE TIMES ...
     Dates: start: 20240301, end: 20240329
  13. PERMETHRIN [Concomitant]
     Active Substance: PERMETHRIN
     Dosage: APPLY ALL OVER, LEAVE FOR 12 HOURS THEN WASH OFF
     Dates: start: 20240408, end: 20240408
  14. PRASUGREL [Concomitant]
     Active Substance: PRASUGREL
     Dosage: TO HELP PREVENT HEART ...
     Dates: start: 20240318
  15. SACUBITRIL [Concomitant]
     Active Substance: SACUBITRIL
     Dates: start: 20240318

REACTIONS (1)
  - Urticaria [Recovered/Resolved]
